FAERS Safety Report 10955025 (Version 1)
Quarter: 2015Q1

REPORT INFORMATION
  Report Type: Spontaneous
  Country: US (occurrence: US)
  Receive Date: 20150325
  Receipt Date: 20150325
  Transmission Date: 20150721
  Serious: No
  Sender: FDA-Public Use
  Company Number: US-009507513-1503USA011716

PATIENT
  Age: 93 Year
  Sex: Female

DRUGS (1)
  1. COPPERTONE SPF 15 [Suspect]
     Active Substance: AVOBENZONE\HOMOSALATE\OCTISALATE\OCTOCRYLENE
     Indication: PROPHYLAXIS AGAINST SOLAR RADIATION
     Dosage: UNK, PRN
     Route: 061
     Dates: start: 20150320

REACTIONS (2)
  - Eye irritation [Recovering/Resolving]
  - Exposure via direct contact [Unknown]

NARRATIVE: CASE EVENT DATE: 20150320
